FAERS Safety Report 24344378 (Version 1)
Quarter: 2024Q3

REPORT INFORMATION
  Report Type: Spontaneous
  Country: US (occurrence: None)
  Receive Date: 20240920
  Receipt Date: 20240920
  Transmission Date: 20241017
  Serious: Yes (Hospitalization)
  Sender: Public
  Company Number: None

PATIENT
  Sex: Male

DRUGS (1)
  1. AUSTEDO [Suspect]
     Active Substance: DEUTETRABENAZINE
     Indication: Dyskinesia
     Dosage: FREQUENCY : TWICE A DAY;?
     Route: 048
     Dates: start: 20230303

REACTIONS (3)
  - Fall [None]
  - Femur fracture [None]
  - Shoulder fracture [None]
